FAERS Safety Report 8166745 (Version 2)
Quarter: 2013Q1

REPORT INFORMATION
  Report Type: Spontaneous
  Country: US (occurrence: US)
  Receive Date: 20111003
  Receipt Date: 20130319
  Transmission Date: 20140127
  Serious: Yes (Other)
  Sender: FDA-Public Use
  Company Number: US-BAXTER-2011BH027194

PATIENT
  Age: 28 Year
  Sex: Female
  Weight: 64.09 kg

DRUGS (11)
  1. GAMMAGARD LIQUID [Suspect]
     Indication: THROMBOCYTOPENIA NEONATAL
     Route: 042
     Dates: start: 20110712, end: 20110712
  2. GAMMAGARD LIQUID [Suspect]
     Indication: OFF LABEL USE
     Route: 042
     Dates: start: 20110719, end: 20110719
  3. GAMMAGARD LIQUID [Suspect]
     Route: 042
     Dates: start: 20110531, end: 20110531
  4. GAMMAGARD LIQUID [Suspect]
     Route: 042
     Dates: start: 20110605, end: 20110605
  5. GAMMAGARD LIQUID [Suspect]
     Route: 042
     Dates: start: 20110629, end: 20110629
  6. GAMMAGARD LIQUID [Suspect]
     Route: 042
     Dates: start: 20110621, end: 20110621
  7. GAMMAGARD LIQUID [Suspect]
     Route: 042
     Dates: start: 20110613, end: 20110613
  8. GAMMAGARD LIQUID [Suspect]
     Route: 042
     Dates: start: 20110531, end: 20110719
  9. SODIUM CHLORIDE [Suspect]
     Indication: PREMEDICATION
     Route: 042
     Dates: start: 20110531
  10. SODIUM CHLORIDE [Suspect]
     Route: 040
     Dates: start: 20110531
  11. PRENATAL VITAMINS [Concomitant]
     Indication: SUPPLEMENTATION THERAPY
     Route: 048

REACTIONS (3)
  - Haemolytic anaemia [Recovered/Resolved]
  - Gestational diabetes [Unknown]
  - Exposure during pregnancy [Not Recovered/Not Resolved]
